FAERS Safety Report 5807505-7 (Version None)
Quarter: 2008Q3

REPORT INFORMATION
  Report Type: 
  Country: None (occurrence: None)
  Receive Date: 20080711
  Receipt Date: 20080707
  Transmission Date: 20090109
  Serious: Yes (Hospitalization)
  Sender: FDA-Public Use
  Company Number: JP-BRISTOL-MYERS SQUIBB COMPANY-14244123

PATIENT
  Age: 14 Year
  Sex: Male

DRUGS (4)
  1. TAXOL [Suspect]
     Indication: CHORIOCARCINOMA
     Dosage: 18APR08-13JUN08,STARTED ON 04APR08 AS 128MG/DAY.
     Route: 041
     Dates: start: 20080613, end: 20080613
  2. PARAPLATIN [Suspect]
     Indication: CHORIOCARCINOMA
     Dosage: ALSO TAKEN ON 12-14OCT07, 07-09NOV07, 23-25JAN08,19-21FEB08
     Route: 041
     Dates: start: 20080221, end: 20080221
  3. VEPESID [Suspect]
     Indication: CHORIOCARCINOMA
     Dosage: ALSO TAKEN ON 18-20AUG07, 12-14OCT07, 07-09NOV07, 23-25JAN08,22-24FEB08.
     Route: 041
     Dates: start: 20080224, end: 20080224
  4. GEMZAR [Suspect]
     Indication: CHORIOCARCINOMA
     Dosage: 18APR08-13JUN08,STARTED ON 04APR08 AS 1280MG/DAY.
     Route: 041
     Dates: start: 20080613, end: 20080613

REACTIONS (1)
  - HAEMOLYTIC URAEMIC SYNDROME [None]
